FAERS Safety Report 16005110 (Version 1)
Quarter: 2019Q1

REPORT INFORMATION
  Report Type: Report from Study
  Country: None (occurrence: US)
  Receive Date: 20190226
  Receipt Date: 20190226
  Transmission Date: 20190418
  Serious: Yes (Hospitalization)
  Sender: FDA-Public Use
  Company Number: US-ABBVIE-18K-163-2600212-00

PATIENT
  Age: 65 Year
  Sex: Male
  Weight: 56.75 kg

DRUGS (2)
  1. HUMIRA [Suspect]
     Active Substance: ADALIMUMAB
     Indication: CROHN^S DISEASE
     Dosage: DUE TO AN INSURANCE AUTHORIZATION
     Route: 058
     Dates: end: 20181202
  2. HUMIRA [Suspect]
     Active Substance: ADALIMUMAB
     Route: 058
     Dates: start: 20181216, end: 201902

REACTIONS (2)
  - Abscess intestinal [Recovering/Resolving]
  - Intestinal obstruction [Recovering/Resolving]

NARRATIVE: CASE EVENT DATE: 201812
